FAERS Safety Report 7090815-6 (Version None)
Quarter: 2010Q4

REPORT INFORMATION
  Report Type: 
  Country: None (occurrence: None)
  Receive Date: 20101012
  Receipt Date: 20100615
  Transmission Date: 20110411
  Serious: No
  Sender: FDA-Public Use
  Company Number: US_001188

PATIENT
  Weight: 38.7 kg

DRUGS (4)
  1. KUVAN [Suspect]
     Indication: PHENYLKETONURIA
     Dosage: 700 MG QD, ORAL
     Route: 048
     Dates: start: 20091217
  2. VARICELLA VACCINE [Concomitant]
  3. LOVAZA [Concomitant]
  4. NUTRIENTS WITHOUT PHENYLALANINE [Concomitant]

REACTIONS (5)
  - ARTHRALGIA [None]
  - DYSPEPSIA [None]
  - FATIGUE [None]
  - PARAESTHESIA [None]
  - SENSATION OF HEAVINESS [None]
